FAERS Safety Report 9073449 (Version 1)
Quarter: 2013Q1

REPORT INFORMATION
  Report Type: Report from Study
  Country: US (occurrence: US)
  Receive Date: 20130129
  Receipt Date: 20130129
  Transmission Date: 20140127
  Serious: No
  Sender: FDA-Public Use
  Company Number: US-ABBOTT-12P-163-0919185-00

PATIENT
  Age: 64 Year
  Sex: Male

DRUGS (4)
  1. HUMIRA 40 MG/0.8 ML PEN [Suspect]
     Indication: CROHN^S DISEASE
     Dates: start: 20120123, end: 20120326
  2. APRISO [Concomitant]
     Indication: CROHN^S DISEASE
     Dosage: 375 MG, 4 TABS DAILY
     Route: 048
  3. DEXILANT [Concomitant]
     Indication: OESOPHAGEAL DISORDER
     Dosage: DAILY
     Route: 048
  4. DEXILANT [Concomitant]
     Indication: FLATULENCE

REACTIONS (5)
  - Diarrhoea haemorrhagic [Not Recovered/Not Resolved]
  - Diarrhoea [Recovered/Resolved]
  - Malaise [Not Recovered/Not Resolved]
  - Feeling abnormal [Recovered/Resolved]
  - Abdominal distension [Recovered/Resolved]
